FAERS Safety Report 7942206 (Version 21)
Quarter: 2012Q4

REPORT INFORMATION
  Report Type: 
  Country: US (occurrence: US)
  Receive Date: 20110512
  Receipt Date: 20121109
  Transmission Date: 20130627
  Serious: Yes (Hospitalization, Other)
  Sender: FDA-Public Use
  Company Number: PHEH2011US00484

PATIENT
  Sex: Female

DRUGS (17)
  1. ZOMETA [Suspect]
     Indication: BREAST CANCER METASTATIC
     Dosage: 4 mg,
     Route: 042
     Dates: start: 200307, end: 200612
  2. ZOMETA [Suspect]
     Dates: end: 20090413
  3. ZOMETA [Suspect]
     Dates: start: 2004, end: 2006
  4. ATIVAN [Concomitant]
     Dosage: 0.5 mg, PRN
  5. COMPAZINE [Concomitant]
     Dosage: 10 mg, PRN
  6. PEPCID [Concomitant]
     Dosage: 20 mg, BID
  7. XELODA [Concomitant]
     Dosage: 500 mg
  8. METHOTREXATE [Concomitant]
     Dosage: 10 mg, QW
  9. E-VISTA [Concomitant]
  10. CITRACAL [Concomitant]
  11. TRAZODONE [Concomitant]
  12. TYLENOL [Concomitant]
  13. CELEBREX [Concomitant]
  14. HERCEPTIN [Concomitant]
  15. TYKERB [Concomitant]
  16. AMOXICILLIN [Concomitant]
  17. VOLTAREN [Concomitant]

REACTIONS (100)
  - Haemangioma [Unknown]
  - Bone pain [Unknown]
  - Clavicle fracture [Unknown]
  - Fracture nonunion [Unknown]
  - Ecchymosis [Unknown]
  - Depression [Unknown]
  - Dry eye [Unknown]
  - Tinnitus [Unknown]
  - Transaminases increased [Unknown]
  - Lacrimation increased [Unknown]
  - Chest pain [Unknown]
  - Musculoskeletal pain [Not Recovered/Not Resolved]
  - Swelling [Unknown]
  - Fatigue [Unknown]
  - Erythema [Unknown]
  - Skin disorder [Unknown]
  - Nail disorder [Unknown]
  - Neck mass [Unknown]
  - Malignant pleural effusion [Unknown]
  - Adenocarcinoma [Unknown]
  - Otitis media [Unknown]
  - Lumbar vertebral fracture [Unknown]
  - Pathological fracture [Unknown]
  - Bone deformity [Unknown]
  - Dehydration [Unknown]
  - Cataract [Unknown]
  - Macular degeneration [Unknown]
  - Raynaud^s phenomenon [Unknown]
  - Sinus tachycardia [Unknown]
  - Conjunctivitis [Unknown]
  - Metastases to spine [Unknown]
  - Spinal osteoarthritis [Unknown]
  - Large intestine polyp [Unknown]
  - Dyspnoea [Unknown]
  - Osteonecrosis of jaw [Unknown]
  - Discomfort [Unknown]
  - Gingival swelling [Unknown]
  - Gingival inflammation [Unknown]
  - Pain [Unknown]
  - Infection [Unknown]
  - Deformity [Unknown]
  - Anxiety [Unknown]
  - Physical disability [Unknown]
  - Injury [Unknown]
  - Exposed bone in jaw [Unknown]
  - Toothache [Unknown]
  - Loose tooth [Unknown]
  - Pulpitis dental [Unknown]
  - Rheumatoid arthritis [Unknown]
  - Hepatic lesion [Unknown]
  - Renal cyst [Unknown]
  - Thyroid neoplasm [Unknown]
  - Lumbar spinal stenosis [Unknown]
  - Arthropathy [Unknown]
  - Rotator cuff syndrome [Unknown]
  - Pleural fibrosis [Unknown]
  - Hilar lymphadenopathy [Unknown]
  - Pleural effusion [Unknown]
  - Rib fracture [Unknown]
  - Uterine leiomyoma [Unknown]
  - Pulmonary mass [Unknown]
  - Metastases to central nervous system [Unknown]
  - Encephalomalacia [Unknown]
  - Atelectasis [Unknown]
  - Metastases to bone [Not Recovered/Not Resolved]
  - Spondylolisthesis [Unknown]
  - Neuroma [Unknown]
  - Peripheral nerve lesion [Unknown]
  - Osteopenia [Unknown]
  - Cerebrovascular accident [Unknown]
  - Goitre [Unknown]
  - Rectal polyp [Unknown]
  - Gallbladder polyp [Unknown]
  - Cardiac tamponade [Unknown]
  - Pericardial effusion malignant [Unknown]
  - Metastases to lymph nodes [Unknown]
  - Anaemia [Unknown]
  - Hypotension [Unknown]
  - Pericarditis [Unknown]
  - Cardiomegaly [Unknown]
  - Pneumothorax [Unknown]
  - Pericardial haemorrhage [Unknown]
  - Vocal cord paralysis [Unknown]
  - Cerebral cyst [Unknown]
  - Arachnoid cyst [Unknown]
  - Collagen-vascular disease [Unknown]
  - Pulmonary embolism [Unknown]
  - Radiculopathy [Unknown]
  - Intervertebral disc space narrowing [Unknown]
  - Intervertebral disc protrusion [Unknown]
  - Sinusitis [Unknown]
  - Eustachian tube patulous [Unknown]
  - Vocal cord atrophy [Unknown]
  - Nail dystrophy [Unknown]
  - Intervertebral disc degeneration [Unknown]
  - Joint effusion [Unknown]
  - Aortic valve incompetence [Unknown]
  - Pulmonary valve incompetence [Unknown]
  - Tricuspid valve incompetence [Unknown]
  - Spinal pain [Not Recovered/Not Resolved]
